FAERS Safety Report 9732663 (Version 2)
Quarter: 2013Q4

REPORT INFORMATION
  Report Type: Spontaneous
  Country: BE (occurrence: BE)
  Receive Date: 20131205
  Receipt Date: 20131226
  Transmission Date: 20140711
  Serious: Yes (Hospitalization, Other)
  Sender: FDA-Public Use
  Company Number: BE-JNJFOC-20131202056

PATIENT
  Age: 89 Year
  Sex: Female

DRUGS (10)
  1. XARELTO [Suspect]
     Indication: CEREBROVASCULAR ACCIDENT
     Route: 048
     Dates: start: 20131116, end: 20131125
  2. XARELTO [Suspect]
     Indication: ATRIAL FIBRILLATION
     Route: 048
     Dates: start: 20131116, end: 20131125
  3. ALDACTONE [Concomitant]
     Route: 065
  4. LASIX [Concomitant]
     Route: 065
  5. BISOPROLOL [Concomitant]
     Route: 065
  6. XANAX [Concomitant]
     Route: 065
  7. DAFALGAN [Concomitant]
     Route: 065
  8. DOLZAM [Concomitant]
     Route: 065
  9. PANTOPRAZOLE SODIUM [Concomitant]
     Route: 065
  10. CORDARONE [Concomitant]
     Route: 065

REACTIONS (2)
  - Skin reaction [Recovered/Resolved]
  - Cardiac failure [Unknown]
